FAERS Safety Report 4462855-4 (Version None)
Quarter: 2004Q3

REPORT INFORMATION
  Report Type: 
  Country: None (occurrence: None)
  Receive Date: 20040929
  Receipt Date: 20040927
  Transmission Date: 20050211
  Serious: Yes (Death, Hospitalization, Other)
  Sender: FDA-Public Use
  Company Number: 04-09-1339

PATIENT
  Age: 62 Year
  Sex: Male

DRUGS (2)
  1. CLOZAPINE [Suspect]
     Dosage: 500MG QHS ORAL
     Route: 048
     Dates: start: 20000301, end: 20040801
  2. CIPRO [Concomitant]

REACTIONS (7)
  - ACIDOSIS [None]
  - ASPIRATION [None]
  - CARDIAC ARREST [None]
  - DEHYDRATION [None]
  - GASTROENTERITIS [None]
  - PNEUMONIA [None]
  - SALMONELLOSIS [None]
